FAERS Safety Report 16476452 (Version 1)
Quarter: 2019Q2

REPORT INFORMATION
  Report Type: Spontaneous
  Country: US (occurrence: US)
  Receive Date: 20190626
  Receipt Date: 20190626
  Transmission Date: 20190711
  Serious: Yes (Other)
  Sender: FDA-Public Use
  Company Number: US-LUPIN PHARMACEUTICALS INC.-2019-03733

PATIENT
  Age: 17 Year

DRUGS (1)
  1. TRIAMCINOLONE [Suspect]
     Active Substance: TRIAMCINOLONE
     Indication: THERMAL BURN
     Dosage: 2800 MILLIGRAM (TOTAL)
     Route: 023

REACTIONS (3)
  - Drug level increased [Unknown]
  - Adrenal insufficiency [Unknown]
  - Cushing^s syndrome [Unknown]
